FAERS Safety Report 8400594-5 (Version None)
Quarter: 2012Q2

REPORT INFORMATION
  Report Type: 
  Country: None (occurrence: None)
  Receive Date: 20120531
  Receipt Date: 20120516
  Transmission Date: 20120825
  Serious: Yes (Other)
  Sender: FDA-Public Use
  Company Number: CHPA2012US011159

PATIENT
  Age: 54 Year
  Sex: Female

DRUGS (1)
  1. EXCEDRIN EXTRA STRENGTH TABLETS [Suspect]
     Indication: HEADACHE
     Dosage: UNK, UNK
     Route: 048

REACTIONS (4)
  - FIBROMYALGIA [None]
  - MALAISE [None]
  - MOBILITY DECREASED [None]
  - ROTATOR CUFF SYNDROME [None]
